FAERS Safety Report 17000179 (Version 1)
Quarter: 2019Q4

REPORT INFORMATION
  Report Type: Spontaneous
  Country: US (occurrence: US)
  Receive Date: 20190925
  Receipt Date: 20190925
  Transmission Date: 20200122
  Serious: No
  Sender: FDA-Public Use
  Company Number: None

PATIENT

DRUGS (2)
  1. DIPRIVAN [Suspect]
     Active Substance: PROPOFOL
     Route: 042
  2. CLEVIPREX [Suspect]
     Active Substance: CLEVIDIPINE
     Route: 042

REACTIONS (1)
  - Product dosage form confusion [None]
